FAERS Safety Report 19621462 (Version 1)
Quarter: 2021Q3

REPORT INFORMATION
  Report Type: Spontaneous
  Country: US (occurrence: US)
  Receive Date: 20210728
  Receipt Date: 20210728
  Transmission Date: 20211014
  Serious: Yes (Hospitalization)
  Sender: FDA-Public Use
  Company Number: None

PATIENT
  Age: 86 Year

DRUGS (12)
  1. METOPROL SUC TAB 100MG ER [Concomitant]
     Dates: start: 20210415
  2. HYDRALAZINE TAB 50MG [Concomitant]
     Dates: start: 20210314
  3. NEXIUM CAP 40MG [Concomitant]
     Dates: start: 20210321
  4. ATORVASTATIN TAB 40MG [Concomitant]
     Active Substance: ATORVASTATIN
     Dates: start: 20210205
  5. ESOMEPRA MAG CAP 40MG DR [Concomitant]
     Active Substance: ESOMEPRAZOLE MAGNESIUM
     Dates: start: 20210415
  6. FINASTERIDE TAB 5MG [Concomitant]
     Active Substance: FINASTERIDE
     Dates: start: 20210503
  7. CLONIDINE TAB 0.1MG [Concomitant]
     Dates: start: 20210309
  8. OLM MED/AMLO TAB/HCTZ [Concomitant]
     Dates: start: 20210225
  9. LUBIPROSTONE CAP 8MCG [Concomitant]
     Dates: start: 20200215
  10. ARANESP [Suspect]
     Active Substance: DARBEPOETIN ALFA
     Indication: ACUTE KIDNEY INJURY
     Dosage: ?          OTHER FREQUENCY:EVERY 4 WEEKS;?
     Route: 058
     Dates: start: 20210325
  11. TAMSULOSIN CAP 0.4MG [Concomitant]
     Active Substance: TAMSULOSIN
     Dates: start: 20210503
  12. DICYCLOMINE TAB 20MG [Concomitant]
     Dates: start: 20210225

REACTIONS (1)
  - COVID-19 [None]

NARRATIVE: CASE EVENT DATE: 20210727
